FAERS Safety Report 14205000 (Version 7)
Quarter: 2020Q3

REPORT INFORMATION
  Report Type: Spontaneous
  Country: US (occurrence: US)
  Receive Date: 20171120
  Receipt Date: 20200805
  Transmission Date: 20201102
  Serious: Yes (Other)
  Sender: FDA-Public Use
  Company Number: US-PFIZER INC-2015240283

PATIENT
  Age: 34 Year
  Sex: Male

DRUGS (11)
  1. LOSARTAN. [Concomitant]
     Active Substance: LOSARTAN
     Dosage: UNK
     Dates: start: 2010
  2. NARDIL [Suspect]
     Active Substance: PHENELZINE SULFATE
     Indication: ANXIETY
     Dosage: 15 MG, 8 PER DAY
     Dates: start: 198910
  3. MOTRIN [Concomitant]
     Active Substance: IBUPROFEN
     Dosage: UNK
     Dates: start: 2006
  4. GLIPIZIDE. [Concomitant]
     Active Substance: GLIPIZIDE
     Dosage: UNK
     Dates: start: 2010
  5. PROAIR HFA [Concomitant]
     Active Substance: ALBUTEROL SULFATE
     Dosage: UNK
     Dates: start: 2006
  6. NARDIL [Suspect]
     Active Substance: PHENELZINE SULFATE
     Indication: DEPRESSION
     Dosage: 15 MG, UNK
     Dates: start: 198908
  7. NARDIL [Suspect]
     Active Substance: PHENELZINE SULFATE
     Indication: MIGRAINE
     Dosage: UNK
  8. NARDIL [Suspect]
     Active Substance: PHENELZINE SULFATE
     Dosage: 45 MG, 3X/DAY
     Dates: start: 198910
  9. METFORMIN [Concomitant]
     Active Substance: METFORMIN HYDROCHLORIDE
     Dosage: UNK
     Dates: start: 2006
  10. PRAVASTATIN. [Concomitant]
     Active Substance: PRAVASTATIN
     Dosage: UNK
     Dates: start: 2010
  11. ADVAIR HFA [Concomitant]
     Active Substance: FLUTICASONE PROPIONATE\SALMETEROL XINAFOATE
     Dosage: UNK
     Dates: start: 2006

REACTIONS (5)
  - Stress [Recovered/Resolved]
  - Intentional product misuse [Unknown]
  - Migraine [Recovered/Resolved]
  - Prescribed overdose [Unknown]
  - Major depression [Recovered/Resolved]

NARRATIVE: CASE EVENT DATE: 198910
